FAERS Safety Report 8114869-0 (Version None)
Quarter: 2012Q1

REPORT INFORMATION
  Report Type: 
  Country: None (occurrence: None)
  Receive Date: 20120206
  Receipt Date: 20120202
  Transmission Date: 20120608
  Serious: Yes (Death)
  Sender: FDA-Public Use
  Company Number: US-AMGEN-USASP2012006972

PATIENT
  Age: 63 Year
  Sex: Male

DRUGS (1)
  1. NEULASTA [Suspect]
     Indication: NEUTROPENIA
     Dates: start: 20100723

REACTIONS (1)
  - DEATH [None]
